FAERS Safety Report 4862462-5 (Version None)
Quarter: 2005Q4

REPORT INFORMATION
  Report Type: 
  Country: None (occurrence: None)
  Receive Date: 20051221
  Receipt Date: 20051209
  Transmission Date: 20060501
  Serious: Yes (Other)
  Sender: FDA-Public Use
  Company Number: CA-BRISTOL-MYERS SQUIBB COMPANY-13218128

PATIENT
  Age: 54 Year
  Sex: Female

DRUGS (5)
  1. TEQUIN [Suspect]
     Route: 048
  2. ADVIL [Concomitant]
  3. ATIVAN [Concomitant]
     Route: 060
  4. CIPRO [Concomitant]
  5. FLOVENT [Concomitant]

REACTIONS (24)
  - AGEUSIA [None]
  - AGITATION [None]
  - ANOREXIA [None]
  - ANXIETY [None]
  - ARRHYTHMIA [None]
  - ASTHENIA [None]
  - BLOOD GLUCOSE INCREASED [None]
  - BLOOD POTASSIUM [None]
  - BLOOD PRESSURE DECREASED [None]
  - BLOOD SODIUM ABNORMAL [None]
  - BODY TEMPERATURE [None]
  - CONFUSIONAL STATE [None]
  - DIZZINESS [None]
  - EYE INFLAMMATION [None]
  - FEELING COLD [None]
  - GINGIVAL BLEEDING [None]
  - INSOMNIA [None]
  - MALAISE [None]
  - MUSCULAR WEAKNESS [None]
  - PLEURISY [None]
  - TINNITUS [None]
  - VEIN DISCOLOURATION [None]
  - VISUAL DISTURBANCE [None]
  - WEIGHT DECREASED [None]
